FAERS Safety Report 7230581-4 (Version None)
Quarter: 2011Q1

REPORT INFORMATION
  Report Type: 
  Country: None (occurrence: None)
  Receive Date: 20110118
  Receipt Date: 20110110
  Transmission Date: 20110831
  Serious: Yes (Death, Hospitalization, Other)
  Sender: FDA-Public Use
  Company Number: PHEH2007US05991

PATIENT
  Sex: Male

DRUGS (18)
  1. GABAPENTIN [Concomitant]
  2. KETAMINE [Concomitant]
  3. LIDOCAINE HYDROCHLORIDE IN PLASTIC CONTAINER [Concomitant]
  4. MIRALAX [Concomitant]
  5. ZOMETA [Suspect]
     Dosage: 4MG
     Dates: start: 20030201, end: 20051201
  6. FASLODEX [Concomitant]
     Dosage: UNK
     Dates: start: 20040101
  7. DOCUSATE [Concomitant]
  8. FEMARA [Concomitant]
     Dosage: 2.5MG
     Dates: start: 20030123
  9. FIORINAL [Concomitant]
  10. SENNA [Concomitant]
  11. COUMADIN [Concomitant]
  12. CODEINE [Concomitant]
  13. TAMOXIFEN [Concomitant]
  14. MILK OF MAGNESIA [Concomitant]
  15. FENTANYL [Concomitant]
  16. NEURONTIN [Concomitant]
  17. CLONIDINE [Concomitant]
  18. NYSTATIN [Concomitant]

REACTIONS (33)
  - ATRIAL FIBRILLATION [None]
  - ALTERED STATE OF CONSCIOUSNESS [None]
  - AORTIC DILATATION [None]
  - INJURY [None]
  - PERIODONTITIS [None]
  - METASTASES TO LUNG [None]
  - GAIT DISTURBANCE [None]
  - DEATH [None]
  - BACK PAIN [None]
  - ANAEMIA [None]
  - OEDEMA PERIPHERAL [None]
  - ANXIETY [None]
  - BONE DISORDER [None]
  - NAUSEA [None]
  - METASTASES TO BONE [None]
  - METASTATIC PAIN [None]
  - LEUKOPENIA [None]
  - DECUBITUS ULCER [None]
  - MYOCLONUS [None]
  - PAIN [None]
  - IMPAIRED HEALING [None]
  - DENTAL CARIES [None]
  - NEUTROPENIA [None]
  - VOMITING [None]
  - LYMPHADENOPATHY [None]
  - HYPERTENSION [None]
  - ASTHENIA [None]
  - MUSCLE SPASMS [None]
  - OSTEONECROSIS OF JAW [None]
  - PRIMARY SEQUESTRUM [None]
  - ARTHRALGIA [None]
  - FATIGUE [None]
  - THROMBOCYTOPENIA [None]
